FAERS Safety Report 11698747 (Version 1)
Quarter: 2015Q4

REPORT INFORMATION
  Report Type: Spontaneous
  Country: US (occurrence: US)
  Receive Date: 20151104
  Receipt Date: 20151104
  Transmission Date: 20160304
  Serious: No
  Sender: FDA-Public Use
  Company Number: US-ELI_LILLY_AND_COMPANY-US201012006348

PATIENT
  Age: 58 Year
  Sex: Female

DRUGS (7)
  1. FLAXSEED [Concomitant]
     Active Substance: FLAX SEED
  2. FISH OIL [Concomitant]
     Active Substance: FISH OIL
  3. FORTEO [Suspect]
     Active Substance: TERIPARATIDE
     Dosage: 20 UG, QD
  4. MAGNESIUM [Concomitant]
     Active Substance: MAGNESIUM
     Dosage: 0.5 D/F, UNK
  5. VITAMIN E /001105/ [Concomitant]
  6. FORTEO [Suspect]
     Active Substance: TERIPARATIDE
     Indication: OSTEOPOROSIS
     Dosage: 20 UG, DAILY (1/D)
     Dates: start: 20101216
  7. MAGNESIUM [Concomitant]
     Active Substance: MAGNESIUM
     Dosage: 1 D/F, UNK

REACTIONS (4)
  - Diarrhoea [Recovered/Resolved]
  - Muscle spasms [Unknown]
  - Epistaxis [Unknown]
  - Pain in extremity [Unknown]

NARRATIVE: CASE EVENT DATE: 20101219
